FAERS Safety Report 19237626 (Version 1)
Quarter: 2021Q2

REPORT INFORMATION
  Report Type: Spontaneous
  Country: US (occurrence: US)
  Receive Date: 20210510
  Receipt Date: 20210510
  Transmission Date: 20210717
  Serious: No
  Sender: FDA-Public Use
  Company Number: None

PATIENT
  Sex: Female

DRUGS (1)
  1. ENTECAVIR 0.5MG SOLCO HEALTHCARE [Suspect]
     Active Substance: ENTECAVIR
     Indication: HEPATITIS VIRAL
     Route: 048
     Dates: start: 202104

REACTIONS (1)
  - Renal failure [None]
